FAERS Safety Report 20965087 (Version 1)
Quarter: 2022Q2

REPORT INFORMATION
  Report Type: Spontaneous
  Country: PL (occurrence: PL)
  Receive Date: 20220616
  Receipt Date: 20220616
  Transmission Date: 20220721
  Serious: Yes (Other)
  Sender: FDA-Public Use
  Company Number: PL-SUN PHARMACEUTICAL INDUSTRIES LTD-2022R1-340919

PATIENT
  Age: 78 Year
  Sex: Male

DRUGS (5)
  1. DOXORUBICIN [Suspect]
     Active Substance: DOXORUBICIN
     Indication: Chronic lymphocytic leukaemia
     Dosage: UNK (6 COURSES)
     Route: 065
     Dates: start: 201609, end: 201702
  2. PREDNISONE [Suspect]
     Active Substance: PREDNISONE
     Indication: Chronic lymphocytic leukaemia
     Dosage: UNK (6 COURSES)
     Route: 065
     Dates: start: 201609, end: 201702
  3. VINCRISTINE [Suspect]
     Active Substance: VINCRISTINE
     Indication: Chronic lymphocytic leukaemia
     Dosage: UNK (6 COURSES)
     Route: 065
     Dates: start: 201509, end: 201702
  4. CYCLOPHOSPHAMIDE [Suspect]
     Active Substance: CYCLOPHOSPHAMIDE
     Indication: Chronic lymphocytic leukaemia
     Dosage: UNK (6 COURSES)
     Route: 065
     Dates: start: 201609, end: 201702
  5. RITUXIMAB [Suspect]
     Active Substance: RITUXIMAB
     Indication: Chronic lymphocytic leukaemia
     Dosage: UNK (6 COURSES)
     Route: 065
     Dates: start: 201609, end: 201702

REACTIONS (2)
  - Neoplasm progression [Unknown]
  - Therapeutic response decreased [Unknown]
